FAERS Safety Report 21810811 (Version 1)
Quarter: 2023Q1

REPORT INFORMATION
  Report Type: Spontaneous
  Country: US (occurrence: US)
  Receive Date: 20230103
  Receipt Date: 20230103
  Transmission Date: 20230418
  Serious: No
  Sender: FDA-Public Use
  Company Number: US-AMGEN-USASP2022226571

PATIENT
  Age: 26 Year
  Sex: Female

DRUGS (2)
  1. AIMOVIG [Suspect]
     Active Substance: ERENUMAB-AOOE
     Indication: Migraine
     Dosage: 70 MILLIGRAM, QMO
     Route: 065
     Dates: start: 20221217
  2. AIMOVIG [Suspect]
     Active Substance: ERENUMAB-AOOE
     Indication: Nervous system disorder

REACTIONS (3)
  - Device difficult to use [Unknown]
  - Product communication issue [Unknown]
  - Drug dose omission by device [Unknown]

NARRATIVE: CASE EVENT DATE: 20221217
